FAERS Safety Report 5807152-7 (Version None)
Quarter: 2008Q3

REPORT INFORMATION
  Report Type: 
  Country: None (occurrence: None)
  Receive Date: 20080711
  Receipt Date: 20080708
  Transmission Date: 20090109
  Serious: Yes (Death)
  Sender: FDA-Public Use
  Company Number: JP-AVENTIS-200812096JP

PATIENT
  Age: 42 Year
  Sex: Female

DRUGS (1)
  1. LASIX [Suspect]
     Route: 048
     Dates: start: 20050801, end: 20051001

REACTIONS (1)
  - PANCREATITIS ACUTE [None]
